FAERS Safety Report 9856726 (Version 2)
Quarter: 2014Q1

REPORT INFORMATION
  Report Type: Spontaneous
  Country: JP (occurrence: JP)
  Receive Date: 20140130
  Receipt Date: 20140205
  Transmission Date: 20141002
  Serious: Yes (Hospitalization)
  Sender: FDA-Public Use
  Company Number: JP-GLAXOSMITHKLINE-B0963146A

PATIENT
  Age: 25 Year
  Sex: Female

DRUGS (5)
  1. LAMICTAL [Suspect]
     Indication: EPILEPSY
     Route: 048
  2. TEGRETOL [Suspect]
     Indication: EPILEPSY
     Route: 048
  3. HYDROCORTISONE [Concomitant]
     Indication: ADRENAL INSUFFICIENCY
     Route: 065
  4. FLUDROCORTISONE ACETATE [Concomitant]
     Indication: ADRENAL INSUFFICIENCY
     Route: 048
  5. VALPROATE SODIUM [Concomitant]
     Indication: EPILEPSY
     Route: 048

REACTIONS (5)
  - Convulsion [Unknown]
  - Pyrexia [Recovered/Resolved]
  - Somnolence [Recovered/Resolved]
  - Hyponatraemia [Unknown]
  - Blood cortisol decreased [Unknown]
